FAERS Safety Report 19090263 (Version 1)
Quarter: 2021Q2

REPORT INFORMATION
  Report Type: Spontaneous
  Country: US (occurrence: US)
  Receive Date: 20210404
  Receipt Date: 20210404
  Transmission Date: 20210717
  Serious: Yes (Other)
  Sender: FDA-Public Use
  Company Number: US-PURDUE-USA-2020-0172782

PATIENT
  Age: 29 Year
  Sex: Female

DRUGS (1)
  1. BUPRENORPHINE. [Suspect]
     Active Substance: BUPRENORPHINE
     Indication: DRUG DEPENDENCE
     Dosage: UNK
     Route: 058

REACTIONS (4)
  - Wrong technique in product usage process [Unknown]
  - Drug abuse [Unknown]
  - Intentional product use issue [Unknown]
  - Foreign body reaction [Unknown]
